FAERS Safety Report 6214640-0 (Version None)
Quarter: 2009Q2

REPORT INFORMATION
  Report Type: 
  Country: None (occurrence: None)
  Receive Date: 20090604
  Receipt Date: 20090525
  Transmission Date: 20091009
  Serious: Yes (Hospitalization)
  Sender: FDA-Public Use
  Company Number: FR-PFIZER INC-2009217477

PATIENT
  Age: 81 Year

DRUGS (20)
  1. AMLOR [Suspect]
     Indication: HYPERTENSION
     Dosage: UNK
     Route: 048
     Dates: start: 20090328, end: 20090331
  2. PREVISCAN [Suspect]
     Indication: ATRIAL FIBRILLATION
     Dosage: 20 MG, UNK
     Route: 048
     Dates: start: 20060602, end: 20090503
  3. TAVANIC [Suspect]
     Indication: BRONCHITIS
     Dosage: 500 MG, 1X/DAY
     Route: 048
     Dates: start: 20090327, end: 20090330
  4. TAZOCILLINE [Suspect]
     Indication: BRONCHITIS
     Dosage: 4 G, 3X/DAY
     Route: 042
     Dates: start: 20090403, end: 20090417
  5. AMIKLIN [Suspect]
     Indication: BRONCHITIS
     Dosage: 900 MG, 1X/DAY
     Route: 042
     Dates: start: 20090403, end: 20090408
  6. TIENAM [Suspect]
     Indication: BRONCHITIS
     Dosage: 1 G, 3X/DAY
     Dates: start: 20090429, end: 20090505
  7. SYMBICORT [Suspect]
     Indication: OBSTRUCTIVE AIRWAYS DISORDER
     Dosage: UNK
     Route: 055
     Dates: start: 20090330
  8. BRICANYL [Suspect]
     Indication: OBSTRUCTIVE AIRWAYS DISORDER
     Dosage: UNK
     Dates: start: 20090330
  9. ATROVENT [Suspect]
     Indication: OBSTRUCTIVE AIRWAYS DISORDER
     Dosage: UNK
     Dates: start: 20090330
  10. LASIX [Suspect]
     Indication: CARDIAC FAILURE
     Dosage: 125 MG, 1X/DAY
     Dates: start: 20090327, end: 20090401
  11. LASIX [Suspect]
     Dosage: 40 MG, 1X/DAY
     Dates: start: 20090327, end: 20090401
  12. CORDARONE [Suspect]
     Indication: VENTRICULAR TACHYCARDIA
     Dosage: 5 DF, 1X/DAY
     Dates: start: 20090327, end: 20090429
  13. CHRONADALATE [Suspect]
     Indication: HYPERTENSION
     Dosage: 1 DF, 1X/DAY
     Route: 048
     Dates: end: 20090331
  14. MODURETIC 5-50 [Concomitant]
     Dosage: 5 MG, UNK
  15. GLYCERYL TRINITRATE [Concomitant]
  16. TRIATEC [Concomitant]
     Dosage: 2.5 MG, UNK
  17. VENTOLIN [Concomitant]
  18. DIFFU K [Concomitant]
     Dosage: UNK
     Dates: end: 20090402
  19. ROCEPHIN [Concomitant]
     Dosage: UNK
     Dates: start: 20090331, end: 20090401
  20. FLAGYL [Concomitant]
     Dosage: UNK
     Dates: start: 20090401, end: 20090402

REACTIONS (2)
  - AGRANULOCYTOSIS [None]
  - LYMPHOPENIA [None]
